FAERS Safety Report 6271163-0 (Version None)
Quarter: 2009Q3

REPORT INFORMATION
  Report Type: 
  Country: None (occurrence: None)
  Receive Date: 20090717
  Receipt Date: 20070724
  Transmission Date: 20100115
  Serious: Yes (Other)
  Sender: FDA-Public Use
  Company Number: US-ASTRAZENECA-2007UW12165

PATIENT
  Age: 48 Year
  Sex: Female
  Weight: 86.2 kg

DRUGS (16)
  1. SEROQUEL [Suspect]
     Indication: DEPRESSION
     Route: 048
     Dates: start: 19990727
  2. SEROQUEL [Suspect]
     Indication: HALLUCINATION
     Route: 048
     Dates: start: 19990727
  3. SEROQUEL [Suspect]
     Indication: INSOMNIA
     Route: 048
     Dates: start: 19990727
  4. SEROQUEL [Suspect]
     Dosage: 100 - 300 MG FLUCTUATING
     Route: 048
     Dates: start: 19991012
  5. SEROQUEL [Suspect]
     Dosage: 100 - 300 MG FLUCTUATING
     Route: 048
     Dates: start: 19991012
  6. SEROQUEL [Suspect]
     Dosage: 100 - 300 MG FLUCTUATING
     Route: 048
     Dates: start: 19991012
  7. ATIVAN [Concomitant]
  8. PROZAC [Concomitant]
     Dates: start: 19991012
  9. LORTAB [Concomitant]
     Indication: MYALGIA
     Dosage: 7.5 - 500 MG BID
     Dates: start: 20041103
  10. LORTAB [Concomitant]
     Indication: MYOSITIS
     Dosage: 7.5 - 500 MG BID
     Dates: start: 20041103
  11. WELLBUTRIN XI [Concomitant]
     Dates: start: 20041103
  12. AVANDIA [Concomitant]
     Route: 048
     Dates: start: 20041103
  13. PLAVIX [Concomitant]
     Indication: ARTERIOSCLEROSIS
     Route: 048
     Dates: start: 20041103
  14. TRILEPTAL [Concomitant]
     Route: 048
     Dates: start: 20041103
  15. STARLIX [Concomitant]
     Route: 048
     Dates: start: 20041103
  16. PROTONIX [Concomitant]
     Dates: start: 20041103

REACTIONS (3)
  - DIABETES MELLITUS INADEQUATE CONTROL [None]
  - DIABETIC NEUROPATHY [None]
  - TYPE 2 DIABETES MELLITUS [None]
